FAERS Safety Report 6338292-4 (Version None)
Quarter: 2009Q3

REPORT INFORMATION
  Report Type: 
  Country: None (occurrence: None)
  Receive Date: 20090902
  Receipt Date: 20090824
  Transmission Date: 20100115
  Serious: Yes (Other)
  Sender: FDA-Public Use
  Company Number: US-JNJFOC-20090807816

PATIENT
  Age: 69 Year
  Sex: Female
  Weight: 70.76 kg

DRUGS (6)
  1. MOTRIN IB [Suspect]
     Route: 048
  2. MOTRIN IB [Suspect]
     Indication: JOINT INJURY
     Route: 048
  3. ASPIRIN [Concomitant]
     Indication: PROPHYLAXIS
  4. INDOCIN [Concomitant]
     Indication: PAIN
     Dosage: DAILY FOR 1 YEAR
  5. AMITRIPTYLINE [Concomitant]
     Indication: DEPRESSION
     Dosage: DAILY FOR 1 YEAR
  6. PREDNISONE [Concomitant]
     Indication: STEROID THERAPY
     Dosage: 1 YEAR

REACTIONS (3)
  - DEAFNESS UNILATERAL [None]
  - INTENTIONAL OVERDOSE [None]
  - TINNITUS [None]
